FAERS Safety Report 7142498-4 (Version None)
Quarter: 2010Q4

REPORT INFORMATION
  Report Type: 
  Country: None (occurrence: None)
  Receive Date: 20101112
  Receipt Date: 20100728
  Transmission Date: 20110411
  Serious: No
  Sender: FDA-Public Use
  Company Number: 1000015384

PATIENT
  Age: 60 Year
  Sex: Female

DRUGS (21)
  1. SAVELLA [Suspect]
     Indication: FIBROMYALGIA
     Dosage: 12.5 MG (12.5 MG, 1 IN 1 D), ORAL; 25 MG (12.5 MG, 2  IN 1 D), ORAL; 50 MG (25 MG, 2 IN 1 D), ORAL
     Route: 048
     Dates: start: 20100724, end: 20100724
  2. SAVELLA [Suspect]
     Indication: FIBROMYALGIA
     Dosage: 12.5 MG (12.5 MG, 1 IN 1 D), ORAL; 25 MG (12.5 MG, 2  IN 1 D), ORAL; 50 MG (25 MG, 2 IN 1 D), ORAL
     Route: 048
     Dates: start: 20100725, end: 20100726
  3. SAVELLA [Suspect]
     Indication: FIBROMYALGIA
     Dosage: 12.5 MG (12.5 MG, 1 IN 1 D), ORAL; 25 MG (12.5 MG, 2  IN 1 D), ORAL; 50 MG (25 MG, 2 IN 1 D), ORAL
     Route: 048
     Dates: start: 20100727
  4. NEXIUM [Concomitant]
  5. REQUIP [Concomitant]
  6. LORTAB [Concomitant]
  7. CRESTOR [Concomitant]
  8. MOBIC [Concomitant]
  9. XANAX [Concomitant]
  10. COREG [Concomitant]
  11. CELEXA [Concomitant]
  12. LYRICA [Concomitant]
  13. SYTHROID [Concomitant]
  14. AMBIEN [Concomitant]
  15. SOMA [Concomitant]
  16. RESTASIS [Concomitant]
  17. PROGESTERONE [Concomitant]
  18. TESTOSTERONE [Concomitant]
  19. BONTRIL [Concomitant]
  20. TELDRIN [Concomitant]
  21. LUMIGAN [Concomitant]

REACTIONS (1)
  - HEADACHE [None]
